FAERS Safety Report 15337095 (Version 3)
Quarter: 2019Q1

REPORT INFORMATION
  Report Type: Report from Study
  Country: CA (occurrence: CA)
  Receive Date: 20180831
  Receipt Date: 20190317
  Transmission Date: 20190417
  Serious: Yes (Other)
  Sender: FDA-Public Use
  Company Number: CA-ROCHE-1865161

PATIENT
  Age: 75 Year
  Sex: Female
  Weight: 49.3 kg

DRUGS (15)
  1. ESBRIET [Suspect]
     Active Substance: PIRFENIDONE
     Route: 048
     Dates: start: 20170508
  2. ROSUVASTATIN. [Concomitant]
     Active Substance: ROSUVASTATIN
  3. ASA [Concomitant]
     Active Substance: ASPIRIN
  4. FERAMAX [Concomitant]
     Active Substance: IRON\POLYSACCHARIDES
  5. ATIVAN [Concomitant]
     Active Substance: LORAZEPAM
  6. SYNTHROID [Concomitant]
     Active Substance: LEVOTHYROXINE SODIUM
  7. BISOPROLOL [Concomitant]
     Active Substance: BISOPROLOL
  8. ESBRIET [Suspect]
     Active Substance: PIRFENIDONE
     Dosage: 1869 MG PER DAY (2-2-3)
     Route: 048
     Dates: start: 20170302
  9. FUROSEMIDE. [Concomitant]
     Active Substance: FUROSEMIDE
  10. VITAMIN B12 [Concomitant]
     Active Substance: CYANOCOBALAMIN
  11. ESBRIET [Suspect]
     Active Substance: PIRFENIDONE
     Route: 048
     Dates: start: 2016
  12. RANITIDINE. [Concomitant]
     Active Substance: RANITIDINE
  13. ESBRIET [Suspect]
     Active Substance: PIRFENIDONE
     Indication: IDIOPATHIC PULMONARY FIBROSIS
     Route: 048
     Dates: start: 20161122
  14. ESBRIET [Suspect]
     Active Substance: PIRFENIDONE
     Route: 048
     Dates: start: 20161206
  15. ESBRIET [Suspect]
     Active Substance: PIRFENIDONE
     Route: 048
     Dates: start: 20161206

REACTIONS (10)
  - Angina pectoris [Recovered/Resolved]
  - Weight decreased [Unknown]
  - Cough [Unknown]
  - Nausea [Not Recovered/Not Resolved]
  - Dyspepsia [Not Recovered/Not Resolved]
  - Dizziness [Not Recovered/Not Resolved]
  - Dizziness [Unknown]
  - Fatigue [Unknown]
  - Hernia pain [Not Recovered/Not Resolved]
  - Gastrooesophageal reflux disease [Not Recovered/Not Resolved]

NARRATIVE: CASE EVENT DATE: 2016
